FAERS Safety Report 22087752 (Version 1)
Quarter: 2023Q1

REPORT INFORMATION
  Report Type: Spontaneous
  Country: GB (occurrence: None)
  Receive Date: 20230313
  Receipt Date: 20230313
  Transmission Date: 20230418
  Serious: Yes (Other)
  Sender: FDA-Public Use
  Company Number: 2023A055702

PATIENT
  Age: 78 Year
  Sex: Female
  Weight: 175 kg

DRUGS (1)
  1. FASENRA [Suspect]
     Active Substance: BENRALIZUMAB
     Indication: Asthma
     Dosage: 30 MG FIRST 3 INJECTIONS EVERY 4 WEEKS, THEN ONE INJECTION EVERY EIGHT WEEKS.; ;
     Route: 058
     Dates: start: 20220715

REACTIONS (1)
  - Dizziness [Not Recovered/Not Resolved]

NARRATIVE: CASE EVENT DATE: 20220715
